FAERS Safety Report 4999786-7 (Version None)
Quarter: 2006Q2

REPORT INFORMATION
  Report Type: 
  Country: None (occurrence: None)
  Receive Date: 20060509
  Receipt Date: 20060425
  Transmission Date: 20061013
  Serious: Yes (Life-Threatening, Hospitalization, Other)
  Sender: FDA-Public Use
  Company Number: 2006-DE-02083GD

PATIENT
  Age: 92 Year
  Sex: Female

DRUGS (10)
  1. PREDNISONE TAB [Suspect]
     Indication: PNEUMONIA
     Dosage: 40 MG, PO
     Route: 048
  2. QUETIAPINE FUMARATE [Suspect]
     Indication: AGITATION
     Dosage: 50 MG (SINGLE DOSE), PO
     Route: 048
  3. HYDRALAZINE HCL [Suspect]
     Indication: HYPERTENSION
     Dosage: 10 MG (SINGLE DOSE), IV
     Route: 042
  4. SALBUTAMOL (SALBUTAMOL) (SALBUTAMOL SULPHATE) [Concomitant]
  5. IPRATROPIUM BROMIDE [Concomitant]
  6. LOVASTATIN [Concomitant]
  7. CEFTRIAXONE [Concomitant]
  8. AZITHROMYCIN [Concomitant]
  9. PANTOPRAZOLE SODIUM [Concomitant]
  10. MECLIZINE [Concomitant]

REACTIONS (9)
  - ACUTE RESPIRATORY FAILURE [None]
  - AGITATION [None]
  - BLOOD PRESSURE INCREASED [None]
  - COMA [None]
  - DELIRIUM [None]
  - DELUSION [None]
  - HYPOTENSION [None]
  - REFUSAL OF TREATMENT BY PATIENT [None]
  - SINUS TACHYCARDIA [None]
